FAERS Safety Report 8242861-4 (Version None)
Quarter: 2012Q1

REPORT INFORMATION
  Report Type: 
  Country: None (occurrence: None)
  Receive Date: 20120329
  Receipt Date: 20120319
  Transmission Date: 20120608
  Serious: Yes (Hospitalization, Other)
  Sender: FDA-Public Use
  Company Number: GB-JNJFOC-20120207586

PATIENT
  Age: 47 Year
  Sex: Female

DRUGS (12)
  1. ACETAMINOPHEN [Suspect]
     Route: 048
  2. OLANZAPINE [Concomitant]
     Route: 065
     Dates: start: 20111101
  3. FLUPENTIXOL [Concomitant]
     Route: 065
     Dates: start: 20100501
  4. CLOZARIL [Suspect]
     Route: 048
     Dates: start: 20020212
  5. PIPORTIL SPECIA [Concomitant]
     Route: 065
     Dates: start: 20110201, end: 20110701
  6. QUETIAPINE [Concomitant]
     Route: 048
     Dates: start: 20110701
  7. FLUPENTIXOL [Concomitant]
     Route: 065
     Dates: start: 20101101
  8. CLOZARIL [Suspect]
     Indication: SCHIZOPHRENIA
     Route: 048
     Dates: start: 20100401, end: 20100426
  9. CLOZARIL [Suspect]
     Route: 048
     Dates: start: 20111201
  10. ACETAMINOPHEN [Suspect]
     Indication: PRODUCT USED FOR UNKNOWN INDICATION
     Route: 048
  11. AMISULPRIDE [Concomitant]
     Route: 065
     Dates: start: 20100801
  12. ARIPIPRAZOLE [Concomitant]
     Route: 065
     Dates: start: 20101001

REACTIONS (5)
  - INTENTIONAL OVERDOSE [None]
  - DRUG INEFFECTIVE [None]
  - MOOD ALTERED [None]
  - HYPERTENSION [None]
  - ELECTROCARDIOGRAM ABNORMAL [None]
